FAERS Safety Report 21812969 (Version 1)
Quarter: 2023Q1

REPORT INFORMATION
  Report Type: Spontaneous
  Country: HU (occurrence: HU)
  Receive Date: 20230103
  Receipt Date: 20230103
  Transmission Date: 20230418
  Serious: Yes (Life-Threatening)
  Sender: FDA-Public Use
  Company Number: None

PATIENT
  Age: 65 Year
  Sex: Female

DRUGS (9)
  1. OXALIPLATIN [Suspect]
     Active Substance: OXALIPLATIN
     Indication: Metastases to peritoneum
     Dosage: 133 MG DURING 4 HOURS
     Route: 042
     Dates: start: 20221129, end: 20221129
  2. OXALIPLATIN [Suspect]
     Active Substance: OXALIPLATIN
     Indication: Colon cancer
  3. MVASI [Suspect]
     Active Substance: BEVACIZUMAB-AWWB
     Indication: Colon cancer
     Dosage: 390 MG DURING 30 MINUTES
     Route: 042
     Dates: start: 20221129, end: 20221129
  4. MVASI [Suspect]
     Active Substance: BEVACIZUMAB-AWWB
     Indication: Metastases to peritoneum
  5. Vidonorm 4 mg/10 mg tablets [Concomitant]
     Indication: Hypertension
     Route: 048
  6. Verospiron 25 mg tabletes [Concomitant]
     Indication: Hypertension
     Route: 048
  7. DIAPREL MR 60 mg [Concomitant]
     Indication: Diabetes mellitus
     Route: 048
  8. CONCOR COR 2.5 MG [Concomitant]
     Indication: Hypertension
     Dosage: 2.5 MG
     Route: 048
  9. CLEXANE 6 000 UI (60 MG)/0.6 ML [Concomitant]
     Indication: Prophylaxis
     Dosage: 6000 INTERNATIONAL UNIT(S)([IU])
     Route: 058

REACTIONS (2)
  - Arteriospasm coronary [Recovered/Resolved]
  - Hypotension [Recovered/Resolved]

NARRATIVE: CASE EVENT DATE: 20221129
